FAERS Safety Report 13192328 (Version 1)
Quarter: 2017Q1

REPORT INFORMATION
  Report Type: Spontaneous
  Country: US (occurrence: US)
  Receive Date: 20170206
  Receipt Date: 20170206
  Transmission Date: 20170428
  Serious: No
  Sender: FDA-Public Use
  Company Number: None

PATIENT
  Age: 65 Year
  Sex: Female

DRUGS (1)
  1. AMPYRA [Suspect]
     Active Substance: DALFAMPRIDINE
     Indication: MULTIPLE SCLEROSIS
     Route: 048
     Dates: start: 20160309

REACTIONS (8)
  - Urine ketone body present [None]
  - White blood cells urine positive [None]
  - Specific gravity urine increased [None]
  - Bacterial test positive [None]
  - Red blood cells urine positive [None]
  - Streptococcus test positive [None]
  - Protein urine present [None]
  - Glucose urine present [None]

NARRATIVE: CASE EVENT DATE: 20170119
